FAERS Safety Report 13779917 (Version 2)
Quarter: 2017Q3

REPORT INFORMATION
  Report Type: Report from Study
  Country: US (occurrence: US)
  Receive Date: 20170723
  Receipt Date: 20170731
  Transmission Date: 20171127
  Serious: Yes (Death, Hospitalization, Other)
  Sender: FDA-Public Use
  Company Number: PHEH2017US022576

PATIENT
  Age: 79 Year
  Sex: Male
  Weight: 75.9 kg

DRUGS (2)
  1. PROMACTA [Suspect]
     Active Substance: ELTROMBOPAG OLAMINE
     Indication: APLASTIC ANAEMIA
     Dosage: 50 MG, BID
     Route: 065
  2. PROMACTA [Suspect]
     Active Substance: ELTROMBOPAG OLAMINE
     Dosage: 75 UNK, UNK
     Route: 048
     Dates: start: 20170517, end: 20170611

REACTIONS (5)
  - Aplastic anaemia [Fatal]
  - Fluid overload [Unknown]
  - Lethargy [Unknown]
  - Dyspnoea [Unknown]
  - Hyperbilirubinaemia [Fatal]

NARRATIVE: CASE EVENT DATE: 20170525
